FAERS Safety Report 24215490 (Version 1)
Quarter: 2024Q3

REPORT INFORMATION
  Report Type: Spontaneous
  Country: SE (occurrence: SE)
  Receive Date: 20240816
  Receipt Date: 20240816
  Transmission Date: 20241016
  Serious: Yes (Other)
  Sender: JUBILANT
  Company Number: None

PATIENT
  Age: 30 Year
  Sex: Female

DRUGS (18)
  1. QUETIAPINE FUMARATE [Suspect]
     Active Substance: QUETIAPINE FUMARATE
     Indication: Product used for unknown indication
     Dosage: UNKNOWN
     Route: 065
  2. TOUJEO [Concomitant]
     Active Substance: INSULIN GLARGINE
     Indication: Product used for unknown indication
     Dosage: 22 IU, ONCE PER DAY
     Route: 058
     Dates: start: 20211130
  3. ARCOXIA [Concomitant]
     Active Substance: ETORICOXIB
     Indication: Product used for unknown indication
     Dates: start: 20190319
  4. FERROUS SULFATE [Concomitant]
     Active Substance: FERROUS SULFATE
     Indication: Product used for unknown indication
     Dosage: 100 MG, ONCE PER DAY
     Route: 065
     Dates: start: 20220729
  5. FLUTICASONE PROPIONATE [Concomitant]
     Active Substance: FLUTICASONE PROPIONATE
     Indication: Product used for unknown indication
     Dosage: 1 APPLICERING VID BEHOV 1 G?NGER DAGLIGEN
     Route: 058
     Dates: start: 20170407
  6. LEVOTHYROXINE SODIUM [Concomitant]
     Active Substance: LEVOTHYROXINE SODIUM
     Indication: Product used for unknown indication
     Dosage: 100 ?G, EVERY OTHER DAY
     Route: 065
     Dates: start: 20170406
  7. LEVOTHYROXINE SODIUM [Concomitant]
     Active Substance: LEVOTHYROXINE SODIUM
     Dosage: 75 ?G, EVERY OTHER DAY
     Dates: start: 20170408
  8. NOVORAPID [Concomitant]
     Active Substance: INSULIN ASPART
     Indication: Product used for unknown indication
     Dosage: ENLIGT S?RSKILD ORDINATION
     Route: 058
     Dates: start: 20170413
  9. NOVORAPID [Concomitant]
     Active Substance: INSULIN ASPART
     Indication: Product used for unknown indication
     Dosage: UNKNOWN
     Route: 058
     Dates: start: 20211102
  10. ATORVASTATIN [Concomitant]
     Active Substance: ATORVASTATIN
     Indication: Product used for unknown indication
     Dosage: UNKNOWN
     Route: 065
     Dates: start: 20210701
  11. INSULIN ASPART [Concomitant]
     Active Substance: INSULIN ASPART
     Indication: Product used for unknown indication
     Dosage: ENLIGT S?RSKILD ORDINATION:PUMPINSULIN ENLIGT ORDINATION
     Route: 058
     Dates: start: 20230206
  12. BETAMETHASONE DIPROPIONATE [Concomitant]
     Active Substance: BETAMETHASONE DIPROPIONATE
     Indication: Product used for unknown indication
     Dosage: 1 APPLICERING VID BEHOV 1 G?NGER DAGLIGEN
     Dates: start: 20170407
  13. HERBALS\KARAYA GUM [Concomitant]
     Active Substance: HERBALS\KARAYA GUM
     Indication: Product used for unknown indication
     Dosage: UNKNOWN
     Route: 065
     Dates: start: 20220726
  14. UREA [Concomitant]
     Active Substance: UREA
     Indication: Product used for unknown indication
     Dosage: 1 APPLICERING VID BEHOV
     Dates: start: 20170403
  15. INSULIN HUMAN [Concomitant]
     Active Substance: INSULIN HUMAN
     Indication: Product used for unknown indication
     Dosage: 11 E KL 08:00 VID BEHOV OCH 11 E KL 20:00 VID BEHOV
     Route: 058
     Dates: start: 20230206
  16. FIASP [Concomitant]
     Active Substance: INSULIN ASPART
     Indication: Product used for unknown indication
     Dosage: 8 E TILL FRUKOST, 8 E TILL LUNCH OCH 8 E TILL MIDDAG. SAMT 8 E TILL FRUKOST, 8 E TILL LUNCH OCH 8 E
     Route: 058
     Dates: start: 20221020
  17. DULOXETINE [Concomitant]
     Active Substance: DULOXETINE
     Indication: Product used for unknown indication
     Dosage: 30 MG, ONCE PER DAY
     Dates: start: 20240129
  18. DULOXETINE [Concomitant]
     Active Substance: DULOXETINE
     Dosage: 60 MG, ONCE PER DAY
     Dates: start: 20240129

REACTIONS (3)
  - Depressed mood [Unknown]
  - Hypomania [Unknown]
  - Fatigue [Unknown]

NARRATIVE: CASE EVENT DATE: 20240101
